FAERS Safety Report 24306031 (Version 2)
Quarter: 2024Q3

REPORT INFORMATION
  Report Type: Spontaneous
  Country: US (occurrence: US)
  Receive Date: 20240911
  Receipt Date: 20240926
  Transmission Date: 20241017
  Serious: Yes (Death, Life-Threatening, Hospitalization)
  Sender: TEVA
  Company Number: US-TEVA-VS-3240328

PATIENT
  Age: 34 Year
  Sex: Male

DRUGS (3)
  1. OCTREOTIDE [Suspect]
     Active Substance: OCTREOTIDE\OCTREOTIDE ACETATE
     Indication: Oesophageal varices haemorrhage
     Route: 065
  2. ENBUCRILATE [Suspect]
     Active Substance: ENBUCRILATE
     Indication: Sclerotherapy
     Route: 065
  3. PANTOPRAZOLE [Suspect]
     Active Substance: PANTOPRAZOLE
     Indication: Oesophageal varices haemorrhage
     Route: 065

REACTIONS (3)
  - Drug ineffective [Fatal]
  - Ventricular arrhythmia [Unknown]
  - Pulmonary embolism [Unknown]
